FAERS Safety Report 11788721 (Version 1)
Quarter: 2015Q4

REPORT INFORMATION
  Report Type: Spontaneous
  Country: US (occurrence: None)
  Receive Date: 20151130
  Receipt Date: 20151130
  Transmission Date: 20160305
  Serious: Yes (Hospitalization)
  Sender: FDA-Public Use
  Company Number: None

PATIENT
  Age: 54 Year
  Sex: Female
  Weight: 70.31 kg

DRUGS (6)
  1. CLARITIN [Concomitant]
     Active Substance: LORATADINE
  2. PROBIOTICS [Concomitant]
     Active Substance: PROBIOTICS NOS
  3. CALCIUM [Concomitant]
     Active Substance: CALCIUM
  4. TYLENOL [Concomitant]
     Active Substance: ACETAMINOPHEN
  5. IBUPROFEN. [Concomitant]
     Active Substance: IBUPROFEN
  6. METRONIDAZOLE 500 MG [Suspect]
     Active Substance: METRONIDAZOLE
     Indication: COLITIS
     Dates: start: 20151121, end: 20151123

REACTIONS (18)
  - Dizziness [None]
  - Paraesthesia [None]
  - Encephalitis [None]
  - Photophobia [None]
  - Muscle spasms [None]
  - Peripheral coldness [None]
  - Headache [None]
  - Musculoskeletal stiffness [None]
  - Pain [None]
  - Swelling [None]
  - Pyrexia [None]
  - Nausea [None]
  - Euphoric mood [None]
  - Asthenia [None]
  - Eye pain [None]
  - Epistaxis [None]
  - Memory impairment [None]
  - Hypoaesthesia [None]

NARRATIVE: CASE EVENT DATE: 20151121
